FAERS Safety Report 26011530 (Version 1)
Quarter: 2025Q4

REPORT INFORMATION
  Report Type: Spontaneous
  Country: US (occurrence: None)
  Receive Date: 20251106
  Receipt Date: 20251106
  Transmission Date: 20260117
  Serious: No
  Sender: FDA-CTU
  Company Number: None

PATIENT
  Age: 58 Year
  Sex: Male
  Weight: 74.25 kg

DRUGS (5)
  1. PRAMIPEXOLE [Suspect]
     Active Substance: PRAMIPEXOLE
     Indication: Restless legs syndrome
  2. lisdexamphetamine 70mg daily [Concomitant]
  3. metaprolol XL 50mg daily [Concomitant]
  4. tramadol 50-100mg daily [Concomitant]
  5. Vit D3 probiotics [Concomitant]

REACTIONS (10)
  - Therapy change [None]
  - Restless legs syndrome [None]
  - Condition aggravated [None]
  - Personality change [None]
  - Obsessive-compulsive disorder [None]
  - Gambling disorder [None]
  - Binge eating [None]
  - Abdominal discomfort [None]
  - Aggression [None]
  - Sudden onset of sleep [None]
